FAERS Safety Report 6626436-6 (Version None)
Quarter: 2010Q1

REPORT INFORMATION
  Report Type: 
  Country: None (occurrence: None)
  Receive Date: 20100310
  Receipt Date: 20091130
  Transmission Date: 20100710
  Serious: No
  Sender: FDA-Public Use
  Company Number: US-ABBOTT-09P-163-0611808-00

PATIENT
  Sex: Female
  Weight: 54.48 kg

DRUGS (2)
  1. LUPRON DEPOT [Suspect]
     Indication: UTERINE LEIOMYOMA
     Route: 050
     Dates: start: 20090203
  2. LUPRON DEPOT [Suspect]
     Indication: VAGINAL HAEMORRHAGE
     Route: 050
     Dates: start: 20091111

REACTIONS (3)
  - DRUG INEFFECTIVE [None]
  - VAGINAL DISCHARGE [None]
  - VAGINAL HAEMORRHAGE [None]
